FAERS Safety Report 9685246 (Version 1)
Quarter: 2013Q4

REPORT INFORMATION
  Report Type: Spontaneous
  Country: US (occurrence: None)
  Receive Date: 20131112
  Receipt Date: 20131112
  Transmission Date: 20140711
  Serious: No
  Sender: FDA-Public Use
  Company Number: None

PATIENT
  Age: 83 Year
  Sex: Male
  Weight: 68.04 kg

DRUGS (8)
  1. EXELON [Suspect]
     Indication: PARKINSONISM
     Dosage: 1 EVERY 24 HR 1 EACH MORNING ON THE SKIN
     Dates: start: 20131011, end: 20131024
  2. NORVASC [Concomitant]
  3. LIPITOR [Concomitant]
  4. PRADAXA [Concomitant]
  5. FLECANIDEX [Concomitant]
  6. SINEMET [Concomitant]
  7. ASPIRIN [Concomitant]
  8. FISH OIL [Concomitant]

REACTIONS (2)
  - Urge incontinence [None]
  - Bladder disorder [None]
